FAERS Safety Report 11971709 (Version 2)
Quarter: 2016Q1

REPORT INFORMATION
  Report Type: Report from Study
  Country: TW (occurrence: TW)
  Receive Date: 20160128
  Receipt Date: 20160229
  Transmission Date: 20160526
  Serious: Yes (Hospitalization, Other)
  Sender: FDA-Public Use
  Company Number: TW-BRISTOL-MYERS SQUIBB COMPANY-BMS-2016-002987

PATIENT
  Age: 57 Year
  Sex: Female

DRUGS (1)
  1. ABATACEPT [Suspect]
     Active Substance: ABATACEPT
     Indication: RHEUMATOID ARTHRITIS
     Dosage: 500 MG, QMO
     Route: 041
     Dates: start: 20150410

REACTIONS (6)
  - Cervical dysplasia [Unknown]
  - Vulval disorder [Unknown]
  - Anogenital warts [Unknown]
  - Cervical conisation [Recovering/Resolving]
  - Tumour excision [Recovering/Resolving]
  - Endocervical curettage [Recovering/Resolving]

NARRATIVE: CASE EVENT DATE: 20160101
